FAERS Safety Report 6506860-2 (Version None)
Quarter: 2009Q4

REPORT INFORMATION
  Report Type: 
  Country: None (occurrence: None)
  Receive Date: 20091221
  Receipt Date: 20091207
  Transmission Date: 20100525
  Serious: Yes (Other)
  Sender: FDA-Public Use
  Company Number: US-SANOFI-AVENTIS-2009SA006960

PATIENT
  Age: 61 Year
  Sex: Male

DRUGS (8)
  1. MULTAQ [Suspect]
     Indication: ATRIAL FIBRILLATION
     Route: 048
     Dates: start: 20091124
  2. VERAPAMIL [Suspect]
     Route: 048
     Dates: end: 20091101
  3. VERAPAMIL [Suspect]
     Route: 048
     Dates: start: 20091101
  4. METOPROLOL TARTRATE [Concomitant]
  5. CITALOPRAM HYDROBROMIDE [Concomitant]
  6. SIMVASTATIN [Concomitant]
  7. MELOXICAM [Concomitant]
     Indication: OSTEOARTHRITIS
  8. ALBUTEROL [Concomitant]

REACTIONS (2)
  - ATRIAL FIBRILLATION [None]
  - DYSPNOEA [None]
